FAERS Safety Report 11288199 (Version 2)
Quarter: 2015Q3

REPORT INFORMATION
  Report Type: Spontaneous
  Country: CH (occurrence: CH)
  Receive Date: 20150721
  Receipt Date: 20150917
  Transmission Date: 20151125
  Serious: Yes (Hospitalization)
  Sender: FDA-Public Use
  Company Number: CH-TEVA-579477ISR

PATIENT
  Age: 37 Year
  Sex: Female

DRUGS (4)
  1. RISPERDAL [Concomitant]
     Active Substance: RISPERIDONE
     Indication: POSTPARTUM DEPRESSION
     Dosage: 2 MILLIGRAM DAILY; TAKEN FOR MONTHS
     Route: 048
  2. CIPRALEX [Suspect]
     Active Substance: ESCITALOPRAM OXALATE
     Indication: POSTPARTUM DEPRESSION
     Dosage: 20 MILLIGRAM DAILY;
     Route: 048
     Dates: start: 201501, end: 20150626
  3. IRFEN [Suspect]
     Active Substance: IBUPROFEN
     Indication: HEADACHE
     Dosage: AS REQUIRED, FOR SEVERAL WEEKS, SOMETIMES TAKEN UP TO 4 X/DAY
     Route: 048
     Dates: end: 20150625
  4. XANAX [Concomitant]
     Active Substance: ALPRAZOLAM
     Indication: ANXIETY DISORDER
     Dosage: LONG TERM, 6 MG IN THE MORNING, 6 MG AT MIDDAY, 6 MG IN THE EVENING
     Route: 048

REACTIONS (3)
  - Speech disorder [Unknown]
  - Hemiparesis [Recovering/Resolving]
  - Cerebral haemorrhage [Recovering/Resolving]

NARRATIVE: CASE EVENT DATE: 20150625
